FAERS Safety Report 18327392 (Version 1)
Quarter: 2020Q3

REPORT INFORMATION
  Report Type: Spontaneous
  Country: JP (occurrence: JP)
  Receive Date: 20200930
  Receipt Date: 20200930
  Transmission Date: 20201103
  Serious: Yes (Death, Hospitalization)
  Sender: FDA-Public Use
  Company Number: JP-TEVA-2020-JP-1832878

PATIENT
  Age: 79 Year
  Sex: Male

DRUGS (3)
  1. RUXOLITINIB [Suspect]
     Active Substance: RUXOLITINIB
     Indication: PRIMARY MYELOFIBROSIS
     Route: 065
  2. PREDNISOLONE. [Suspect]
     Active Substance: PREDNISOLONE
     Indication: EOSINOPHILIC PNEUMONIA
     Route: 065
  3. METHYLPREDNISOLONE. [Suspect]
     Active Substance: METHYLPREDNISOLONE
     Indication: EOSINOPHILIC PNEUMONIA
     Route: 065

REACTIONS (5)
  - Mycobacterium avium complex infection [Fatal]
  - Alveolar proteinosis [Fatal]
  - Condition aggravated [Fatal]
  - Pneumocystis jirovecii pneumonia [Unknown]
  - Respiratory failure [Unknown]
